FAERS Safety Report 23403956 (Version 1)
Quarter: 2024Q1

REPORT INFORMATION
  Report Type: Other
  Country: GB (occurrence: GB)
  Receive Date: 20240116
  Receipt Date: 20240116
  Transmission Date: 20240410
  Serious: Yes (Other)
  Sender: FDA-Public Use
  Company Number: GB-JNJFOC-20231113137

PATIENT

DRUGS (4)
  1. ALLOPURINOL [Suspect]
     Active Substance: ALLOPURINOL
     Indication: Product used for unknown indication
     Dosage: UNK
     Route: 065
     Dates: start: 20231009
  2. EPREX [Suspect]
     Active Substance: ERYTHROPOIETIN
     Indication: Nephrogenic anaemia
     Dosage: 1 DOSAGE FORM, Q.W
     Route: 058
     Dates: start: 20200803, end: 20220307
  3. EPREX [Suspect]
     Active Substance: ERYTHROPOIETIN
     Dosage: 10000
     Route: 042
     Dates: start: 20220901, end: 20230623
  4. EPREX [Suspect]
     Active Substance: ERYTHROPOIETIN
     Dosage: UNK
     Route: 042
     Dates: start: 20220307, end: 20220901

REACTIONS (5)
  - Aplasia pure red cell [Unknown]
  - Hyperparathyroidism [Unknown]
  - Iron deficiency [Unknown]
  - Anti-erythropoietin antibody negative [Not Recovered/Not Resolved]
  - Drug ineffective [Unknown]

NARRATIVE: CASE EVENT DATE: 20230101
